FAERS Safety Report 5672006-6 (Version None)
Quarter: 2008Q1

REPORT INFORMATION
  Report Type: 
  Country: None (occurrence: None)
  Receive Date: 20080317
  Receipt Date: 20080317
  Transmission Date: 20080703
  Serious: Yes (Hospitalization, Other)
  Sender: FDA-Public Use
  Company Number: None

PATIENT
  Age: 25 Year
  Sex: Male
  Weight: 80.831 kg

DRUGS (7)
  1. RITUXIMAB [Suspect]
     Indication: ANTIPHOSPHOLIPID SYNDROME
     Dosage: 1000 MG IV
     Route: 042
     Dates: start: 20071105
  2. RITUXIMAB [Suspect]
     Indication: ANTIPHOSPHOLIPID SYNDROME
     Dosage: 1000 MG IV
     Route: 042
     Dates: start: 20071127
  3. LAMICTAL [Concomitant]
  4. CARBATROL [Concomitant]
  5. ZONEGRON [Concomitant]
  6. LYRICA [Concomitant]
  7. HYZAAR [Concomitant]

REACTIONS (1)
  - CONVULSION [None]
